FAERS Safety Report 13685314 (Version 1)
Quarter: 2017Q2

REPORT INFORMATION
  Report Type: Spontaneous
  Country: FR (occurrence: FR)
  Receive Date: 20170623
  Receipt Date: 20170623
  Transmission Date: 20170830
  Serious: Yes (Other)
  Sender: FDA-Public Use
  Company Number: FR-ELI_LILLY_AND_COMPANY-FR201706007708

PATIENT
  Age: 27 Year
  Sex: Female

DRUGS (1)
  1. ZYPADHERA [Suspect]
     Active Substance: OLANZAPINE PAMOATE
     Indication: BIPOLAR I DISORDER
     Dosage: 300 MG, UNKNOWN
     Route: 030
     Dates: start: 20160909, end: 20170518

REACTIONS (3)
  - Asthenia [Recovering/Resolving]
  - Orthostatic hypotension [Recovered/Resolved]
  - Insomnia [Unknown]

NARRATIVE: CASE EVENT DATE: 20170517
